FAERS Safety Report 11115861 (Version 1)
Quarter: 2015Q2

REPORT INFORMATION
  Report Type: Spontaneous
  Country: US (occurrence: None)
  Receive Date: 20150504
  Receipt Date: 20150504
  Transmission Date: 20150821
  Serious: Yes (Death)
  Sender: FDA-Public Use
  Company Number: 1475720

PATIENT
  Age: 68 Year
  Sex: Male
  Weight: 80.29 kg

DRUGS (7)
  1. COUMADIN [Concomitant]
     Active Substance: WARFARIN SODIUM
  2. WARFARIN (WARFARIN) [Suspect]
     Active Substance: WARFARIN
     Indication: ATRIAL FIBRILLATION
     Route: 048
     Dates: end: 20140909
  3. ASPIRIN (ASPIRIN) [Suspect]
     Active Substance: ASPIRIN
     Indication: TRANSIENT ISCHAEMIC ATTACK
     Dosage: 81 MG (81 MG,1 D),ORAL
     Route: 048
     Dates: end: 20140909
  4. CARBOPLATIN. [Concomitant]
     Active Substance: CARBOPLATIN
  5. AVASTIN [Suspect]
     Active Substance: BEVACIZUMAB
     Indication: NON-SMALL CELL LUNG CANCER
     Dosage: ONLY DOSE (1204 MG, 1 IN 21
     Route: 042
     Dates: start: 20140827, end: 20140827
  6. AVASTIN [Suspect]
     Active Substance: BEVACIZUMAB
     Indication: LUNG CARCINOMA CELL TYPE UNSPECIFIED STAGE IV
     Dosage: ONLY DOSE (1204 MG, 1 IN 21
     Route: 042
     Dates: start: 20140827, end: 20140827
  7. TAXOL [Concomitant]
     Active Substance: PACLITAXEL

REACTIONS (3)
  - Epistaxis [None]
  - Pulmonary haemorrhage [None]
  - Haemoptysis [None]
